FAERS Safety Report 9638607 (Version 2)
Quarter: 2014Q1

REPORT INFORMATION
  Report Type: Spontaneous
  Country: US (occurrence: US)
  Receive Date: 20131022
  Receipt Date: 20140122
  Transmission Date: 20141002
  Serious: No
  Sender: FDA-Public Use
  Company Number: US-BRISTOL-MYERS SQUIBB COMPANY-19448802

PATIENT
  Age: 82 Year
  Sex: Male
  Weight: 99.32 kg

DRUGS (11)
  1. ELIQUIS [Suspect]
     Indication: ATRIAL FIBRILLATION
     Dosage: 13SEP13-25SEP13,10SEP13
     Route: 048
     Dates: start: 20130909, end: 2013
  2. SOTALOL [Suspect]
     Dosage: SOTALOL 80 MG TAB,1/2 UNIT NOS
     Dates: end: 2013
  3. MULTIVITAMIN [Concomitant]
     Dosage: TAB
     Route: 048
  4. NEURONTIN [Concomitant]
     Dosage: NEURONTIN 300MG CAPS,1DF: 1 CAP,2 IN AM,2 IN PM,1 IN EVENING
  5. TERAZOSIN [Concomitant]
     Dosage: TERAZOSIN 2MG CAPS,1DF: 1 CAP AT BED TIME
     Route: 048
  6. MELOXICAM [Concomitant]
     Dosage: MELOXICAM 7.5MG TAB,1DF: 1TAB
     Route: 048
  7. LISINOPRIL [Concomitant]
     Dosage: LISINOPRIL 2.5MG TAB,1DF: 1TAB
     Route: 048
  8. ASPIRIN [Concomitant]
     Dosage: ASPIRIN BUFFERED 81MG TAB,1DF: 1TAB
  9. LOPRESSOR [Concomitant]
     Dosage: LOPRESSOR 50MG TAB,1DF:1/2 TAB
     Route: 048
  10. LASIX [Concomitant]
     Dosage: LASIX 20 MG TABLET,1DF: 2 UNITS NOS
     Route: 048
  11. POTASSIUM CHLORIDE [Concomitant]
     Dosage: POTASSIUM CHLORIDE 10 MEQ TABLET EXTENDED RELEASE,1DF: 2UNITS NOS
     Route: 048

REACTIONS (9)
  - Dyspnoea [Recovered/Resolved]
  - Confusional state [Recovered/Resolved]
  - Agitation [Recovered/Resolved]
  - Nervousness [Recovered/Resolved]
  - Malaise [Recovered/Resolved]
  - Restlessness [Recovered/Resolved]
  - Drug intolerance [Unknown]
  - Oedema peripheral [Unknown]
  - Abdominal distension [Unknown]
